FAERS Safety Report 5930491-6 (Version None)
Quarter: 2008Q4

REPORT INFORMATION
  Report Type: 
  Country: None (occurrence: None)
  Receive Date: 20081026
  Receipt Date: 20081014
  Transmission Date: 20090506
  Serious: Yes (Other)
  Sender: FDA-Public Use
  Company Number: PHEH2008US09209

PATIENT
  Sex: Female

DRUGS (1)
  1. RECLAST [Suspect]
     Dosage: UNK
     Dates: start: 20080201

REACTIONS (10)
  - ABDOMINAL PAIN UPPER [None]
  - BED REST [None]
  - BONE DISORDER [None]
  - CHEST PAIN [None]
  - DEPRESSED MOOD [None]
  - GINGIVAL DISORDER [None]
  - MIGRAINE [None]
  - MOBILITY DECREASED [None]
  - TOOTH DISORDER [None]
  - TOOTH EXTRACTION [None]
